FAERS Safety Report 8259695-7 (Version None)
Quarter: 2012Q2

REPORT INFORMATION
  Report Type: 
  Country: None (occurrence: None)
  Receive Date: 20120404
  Receipt Date: 20120326
  Transmission Date: 20120825
  Serious: Yes (Hospitalization, Other)
  Sender: FDA-Public Use
  Company Number: US-BAYER-2012-010099

PATIENT
  Age: 31 Year
  Sex: Female

DRUGS (1)
  1. MIRENA [Suspect]
     Indication: CONTRACEPTION
     Dosage: 20 MCG/24HR, CONT
     Route: 015
     Dates: start: 20080901, end: 20111215

REACTIONS (6)
  - PELVIC PAIN [None]
  - VAGINITIS BACTERIAL [None]
  - PROCEDURAL PAIN [None]
  - VAGINAL DISCHARGE [None]
  - PELVIC INFECTION [None]
  - SEPTIC SHOCK [None]
